FAERS Safety Report 17746740 (Version 2)
Quarter: 2020Q2

REPORT INFORMATION
  Report Type: Spontaneous
  Country: HR (occurrence: HR)
  Receive Date: 20200505
  Receipt Date: 20200515
  Transmission Date: 20200714
  Serious: Yes (Death, Life-Threatening, Hospitalization, Other)
  Sender: FDA-Public Use
  Company Number: HR-SA-2020SA114346

PATIENT
  Age: 53 Year
  Sex: Male

DRUGS (5)
  1. TACROLIMUS. [Suspect]
     Active Substance: TACROLIMUS
     Indication: IMMUNOSUPPRESSANT DRUG THERAPY
     Dosage: TACROLIMUS TITRATED TO 4 TO 8 NG/ML
     Dates: start: 201111, end: 201404
  2. MYCOPHENOLIC ACID. [Suspect]
     Active Substance: MYCOPHENOLIC ACID
     Indication: IMMUNOSUPPRESSANT DRUG THERAPY
     Dosage: 540 MG, Q12H
     Dates: start: 201111, end: 201404
  3. PREDNISONE. [Suspect]
     Active Substance: PREDNISONE
     Indication: IMMUNOSUPPRESSANT DRUG THERAPY
     Dosage: 5 MG, QD
     Dates: start: 201111, end: 201404
  4. MYCOPHENOLIC ACID. [Suspect]
     Active Substance: MYCOPHENOLIC ACID
     Dosage: 1000 MG, Q12H
     Dates: start: 201111
  5. PREDNISONE. [Suspect]
     Active Substance: PREDNISONE
     Dosage: ON TAPERED DOSE
     Dates: start: 201205, end: 201404

REACTIONS (18)
  - Immune reconstitution inflammatory syndrome [Fatal]
  - Pneumonia [Unknown]
  - Staphylococcal infection [Unknown]
  - Leukopenia [Unknown]
  - Cognitive disorder [Fatal]
  - Depression [Fatal]
  - Pseudomonas infection [Unknown]
  - Mental status changes [Fatal]
  - JC virus infection [Fatal]
  - Insomnia [Fatal]
  - Respiratory failure [Unknown]
  - Speech disorder [Fatal]
  - Progressive multifocal leukoencephalopathy [Fatal]
  - Personality change [Fatal]
  - Motor dysfunction [Fatal]
  - Coma [Unknown]
  - Myalgia [Fatal]
  - Lymphopenia [Unknown]

NARRATIVE: CASE EVENT DATE: 2014
